FAERS Safety Report 4811173-0 (Version None)
Quarter: 2005Q4

REPORT INFORMATION
  Report Type: 
  Country: None (occurrence: None)
  Receive Date: 20051025
  Receipt Date: 20050915
  Transmission Date: 20060501
  Serious: Yes (Other)
  Sender: FDA-Public Use
  Company Number: 12682

PATIENT
  Age: 15 Year
  Sex: Female

DRUGS (1)
  1. PARVOLEX [Suspect]
     Indication: OVERDOSE
     Dosage: 200 ML DAILY IV
     Route: 042

REACTIONS (2)
  - DYSPNOEA [None]
  - RASH [None]
